FAERS Safety Report 11617185 (Version 1)
Quarter: 2015Q4

REPORT INFORMATION
  Report Type: Spontaneous
  Country: US (occurrence: None)
  Receive Date: 20151009
  Receipt Date: 20151009
  Transmission Date: 20160304
  Serious: Yes (Other)
  Sender: FDA-Public Use
  Company Number: US-MDT-ADR-2015-01936

PATIENT
  Age: 57 Year
  Sex: Male

DRUGS (1)
  1. COMPOUNDED BACLOFEN 1200 MCG/ML [Suspect]
     Active Substance: BACLOFEN
     Indication: MUSCLE SPASTICITY
     Dosage: 699.5 MCG/DAY

REACTIONS (2)
  - Device failure [None]
  - Drug withdrawal syndrome [None]
